FAERS Safety Report 4348789-4 (Version None)
Quarter: 2004Q2

REPORT INFORMATION
  Report Type: 
  Country: None (occurrence: None)
  Receive Date: 20040423
  Receipt Date: 20040412
  Transmission Date: 20050107
  Serious: Yes (Hospitalization)
  Sender: FDA-Public Use
  Company Number: 2004US000433

PATIENT
  Age: 52 Year
  Sex: Female
  Weight: 91 kg

DRUGS (5)
  1. PROGRAF [Suspect]
     Indication: LIVER TRANSPLANT
     Dosage: 7.00 MG, BID
  2. METOCLOPRAMIDE [Suspect]
     Dosage: SEE IMAGE
     Dates: start: 20021227, end: 20021230
  3. METOCLOPRAMIDE [Suspect]
     Dosage: SEE IMAGE
     Dates: start: 20021231
  4. PREDNISONE [Concomitant]
  5. SIROLIMUS (SIROLIMUS) [Concomitant]

REACTIONS (8)
  - DRUG INTERACTION [None]
  - DRUG LEVEL ABOVE THERAPEUTIC [None]
  - DRUG LEVEL BELOW THERAPEUTIC [None]
  - GASTRIC HYPOMOTILITY [None]
  - IMPAIRED GASTRIC EMPTYING [None]
  - LIVER TRANSPLANT REJECTION [None]
  - NEPHROPATHY TOXIC [None]
  - NEUROTOXICITY [None]
